FAERS Safety Report 9241773 (Version 2)
Quarter: 2013Q2

REPORT INFORMATION
  Report Type: Spontaneous
  Country: US (occurrence: US)
  Receive Date: 20130419
  Receipt Date: 20130502
  Transmission Date: 20140414
  Serious: Yes (Other)
  Sender: FDA-Public Use
  Company Number: US-JNJFOC-20130406460

PATIENT
  Sex: Male

DRUGS (3)
  1. REMICADE [Suspect]
     Indication: COLITIS ULCERATIVE
     Route: 042
  2. REMICADE [Suspect]
     Indication: COLITIS ULCERATIVE
     Dosage: 2ND DOSE
     Route: 042
     Dates: start: 201303
  3. STEROIDS NOS [Concomitant]
     Indication: COLITIS ULCERATIVE
     Route: 065

REACTIONS (2)
  - Haemorrhage [Not Recovered/Not Resolved]
  - Anaemia of chronic disease [Unknown]
